FAERS Safety Report 4776550-5 (Version None)
Quarter: 2005Q3

REPORT INFORMATION
  Report Type: 
  Country: None (occurrence: None)
  Receive Date: 20050922
  Receipt Date: 20050617
  Transmission Date: 20060218
  Serious: Yes (Death, Life-Threatening)
  Sender: FDA-Public Use
  Company Number: GB-MERCK-0506GBR00147

PATIENT
  Age: 60 Year
  Sex: Male

DRUGS (2)
  1. CANCIDAS [Suspect]
     Indication: LOCALISED INFECTION
     Route: 051
  2. ANTINEOPLASTIC (UNSPECIFIED) [Concomitant]
     Indication: ACUTE MYELOID LEUKAEMIA
     Route: 065

REACTIONS (1)
  - SCEDOSPORIUM INFECTION [None]
